FAERS Safety Report 8729765 (Version 5)
Quarter: 2013Q2

REPORT INFORMATION
  Report Type: Report from Study
  Country: US (occurrence: US)
  Receive Date: 20120817
  Receipt Date: 20130530
  Transmission Date: 20140414
  Serious: Yes (Other)
  Sender: FDA-Public Use
  Company Number: US-TEVA-354042USA

PATIENT
  Age: 21 Year
  Sex: Female

DRUGS (2)
  1. CLARAVIS [Suspect]
     Dosage: 1 BID M,W,F AND 1 QD T,R,SA,SU; QD M,W,F AND BID T,R,SA,SU
     Route: 048
     Dates: start: 20120504, end: 20120806
  2. ORAL CONTRACEPTIVE NOS [Concomitant]
     Indication: CONTRACEPTION
     Route: 048

REACTIONS (2)
  - Unintended pregnancy [Recovered/Resolved]
  - Incorrect drug dosage form administered [Unknown]
